FAERS Safety Report 11777363 (Version 1)
Quarter: 2015Q4

REPORT INFORMATION
  Report Type: Spontaneous
  Country: US (occurrence: US)
  Receive Date: 20151125
  Receipt Date: 20151125
  Transmission Date: 20160304
  Serious: No
  Sender: FDA-Public Use
  Company Number: US-MALLINCKRODT-T201503185

PATIENT
  Sex: Male

DRUGS (2)
  1. GABLOFEN [Suspect]
     Active Substance: BACLOFEN
     Dosage: 1000 MCG/ML CONCENTRATION; DOSE 475.9 MCG/DAY
     Route: 037
     Dates: end: 20150616
  2. GABLOFEN [Suspect]
     Active Substance: BACLOFEN
     Indication: MUSCLE SPASTICITY
     Dosage: 475.9 MCG/DAY
     Route: 037
     Dates: start: 20150616

REACTIONS (1)
  - Drug dispensing error [Unknown]
